FAERS Safety Report 10314617 (Version 3)
Quarter: 2014Q3

REPORT INFORMATION
  Report Type: Report from Study
  Country: US (occurrence: US)
  Receive Date: 20140718
  Receipt Date: 20140930
  Transmission Date: 20150326
  Serious: Yes (Other)
  Sender: FDA-Public Use
  Company Number: US-ELI_LILLY_AND_COMPANY-US201407002138

PATIENT
  Age: 32 Year
  Sex: Female
  Weight: 58.96 kg

DRUGS (14)
  1. OLANZAPINE LONG-ACTING IM [Suspect]
     Active Substance: OLANZAPINE PAMOATE
     Dosage: 210 MG, SINGLE
     Dates: start: 20100811, end: 20100811
  2. MAGNESIUM CITRATE. [Concomitant]
     Active Substance: MAGNESIUM CITRATE
  3. OLANZAPINE LONG-ACTING IM [Suspect]
     Active Substance: OLANZAPINE PAMOATE
     Indication: SCHIZOPHRENIA
     Dosage: 150 MG, SINGLE
     Route: 030
     Dates: start: 20100728, end: 20100728
  4. TYLENOL                                 /SCH/ [Concomitant]
  5. OLANZAPINE LONG-ACTING IM [Suspect]
     Active Substance: OLANZAPINE PAMOATE
     Dosage: 300 MG, OTHER
     Route: 030
     Dates: start: 20110330, end: 20140101
  6. OLANZAPINE LONG-ACTING IM [Suspect]
     Active Substance: OLANZAPINE PAMOATE
     Dosage: 300 MG, MONTHLY (1/M)
     Route: 030
     Dates: start: 20140730
  7. COLACE [Concomitant]
     Active Substance: DOCUSATE SODIUM
  8. OLANZAPINE LONG-ACTING IM [Suspect]
     Active Substance: OLANZAPINE PAMOATE
     Dosage: 300 MG, OTHER
     Route: 030
     Dates: start: 20100825, end: 20101117
  9. OLANZAPINE LONG-ACTING IM [Suspect]
     Active Substance: OLANZAPINE PAMOATE
     Dosage: 405 MG, MONTHLY (1/M)
     Route: 030
     Dates: start: 20101201, end: 20110309
  10. OLANZAPINE LONG-ACTING IM [Suspect]
     Active Substance: OLANZAPINE PAMOATE
     Dosage: 405 MG, MONTHLY (1/M)
     Route: 030
     Dates: start: 20140702
  11. MILK OF MAGNESIA [Concomitant]
     Active Substance: MAGNESIUM HYDROXIDE
  12. OLANZAPINE LONG-ACTING IM [Suspect]
     Active Substance: OLANZAPINE PAMOATE
     Dosage: 405 MG, MONTHLY (1/M)
     Route: 030
     Dates: start: 20140115
  13. OLANZAPINE LONG-ACTING IM [Suspect]
     Active Substance: OLANZAPINE PAMOATE
     Dosage: 300 MG, MONTHLY (1/M)
     Route: 030
     Dates: start: 20140827
  14. MYLANTA                            /00036701/ [Concomitant]

REACTIONS (7)
  - Drooling [Recovered/Resolved]
  - Disorientation [Recovered/Resolved]
  - Delirium [Recovered/Resolved]
  - Dysarthria [Recovered/Resolved]
  - Confusional state [Recovered/Resolved]
  - Gait disturbance [Recovered/Resolved]
  - Aggression [Recovered/Resolved]

NARRATIVE: CASE EVENT DATE: 20140702
